FAERS Safety Report 19161749 (Version 1)
Quarter: 2021Q2

REPORT INFORMATION
  Report Type: Spontaneous
  Country: US (occurrence: US)
  Receive Date: 20210420
  Receipt Date: 20210420
  Transmission Date: 20210717
  Serious: No
  Sender: FDA-Public Use
  Company Number: None

PATIENT
  Age: 64 Year
  Sex: Male
  Weight: 103.42 kg

DRUGS (1)
  1. PIPERACILLIN/TAZOBACTAM NA 2GM/TAZOBACTAM NA 0.25GM/.50MLINJ,BAG,50ML) [Suspect]
     Active Substance: PIPERACILLIN SODIUM\TAZOBACTAM SODIUM
     Indication: PERIRECTAL ABSCESS
     Route: 042
     Dates: start: 20210320, end: 20210323

REACTIONS (1)
  - Nephritis [None]

NARRATIVE: CASE EVENT DATE: 20210323
